FAERS Safety Report 17071243 (Version 1)
Quarter: 2019Q4

REPORT INFORMATION
  Report Type: Spontaneous
  Country: US (occurrence: US)
  Receive Date: 20191025
  Receipt Date: 20191025
  Transmission Date: 20200122
  Serious: Yes (Death)
  Sender: FDA-Public Use
  Company Number: None

PATIENT
  Age: 53 Year
  Sex: Male

DRUGS (19)
  1. FLUTICASONE. [Suspect]
     Active Substance: FLUTICASONE
  2. DOXYCYCLINE. [Suspect]
     Active Substance: DOXYCYCLINE
  3. CLINDAMYCIN. [Suspect]
     Active Substance: CLINDAMYCIN
  4. MAGNESIUM [Suspect]
     Active Substance: MAGNESIUM
  5. FAMOTIDINE. [Suspect]
     Active Substance: FAMOTIDINE
  6. MIRTAZAPINE. [Suspect]
     Active Substance: MIRTAZAPINE
  7. LORBRENA [Suspect]
     Active Substance: LORLATINIB
     Indication: LUNG CARCINOMA CELL TYPE UNSPECIFIED STAGE 0
     Route: 048
  8. NO DRUG NAME [Concomitant]
  9. MIRALAX [Suspect]
     Active Substance: POLYETHYLENE GLYCOL 3350
  10. OXYCODONE [Suspect]
     Active Substance: OXYCODONE
  11. FLOVENT [Suspect]
     Active Substance: FLUTICASONE PROPIONATE
  12. ATROVENT [Suspect]
     Active Substance: IPRATROPIUM BROMIDE
  13. PROCHLORPERAZINE. [Suspect]
     Active Substance: PROCHLORPERAZINE
  14. PIMECROLIMUS. [Suspect]
     Active Substance: PIMECROLIMUS
  15. GUAIFENESIN/CODEINE [Suspect]
     Active Substance: CODEINE PHOSPHATE\GUAIFENESIN
  16. CLOBETASOL [Suspect]
     Active Substance: CLOBETASOL
  17. BETAMETHASONE. [Suspect]
     Active Substance: BETAMETHASONE
  18. SENOKOT [Suspect]
     Active Substance: SENNOSIDES
  19. POTASSIUM [Suspect]
     Active Substance: POTASSIUM

REACTIONS (1)
  - Death [None]

NARRATIVE: CASE EVENT DATE: 20191012
